FAERS Safety Report 22175109 (Version 3)
Quarter: 2023Q2

REPORT INFORMATION
  Report Type: Report from Study
  Country: PL (occurrence: None)
  Receive Date: 20230405
  Receipt Date: 20230426
  Transmission Date: 20230721
  Serious: Yes (Other)
  Sender: FDA-Public Use
  Company Number: PL-ROCHE-3321244

PATIENT
  Age: 71 Year
  Sex: Male
  Weight: 90 kg

DRUGS (15)
  1. GLOFITAMAB [Suspect]
     Active Substance: GLOFITAMAB
     Indication: Diffuse large B-cell lymphoma
     Dosage: ON 01/FEB/2023, HE RECEIVED MOST RECENT DOSE 30 MG OF STUDY DRUG GLOFITAMAB ADMIN PRIOR SAE
     Route: 042
     Dates: start: 20220615
  2. OBINUTUZUMAB [Suspect]
     Active Substance: OBINUTUZUMAB
     Indication: Diffuse large B-cell lymphoma
     Dosage: ON 09/JUN/2022, HE RECEIVED MOST RECENT DOSE 900 MG OF STUDY DRUG OBINUTUZUMAB ADMIN PRIOR SAE
     Route: 042
     Dates: start: 20220608
  3. GEMCITABINE [Suspect]
     Active Substance: GEMCITABINE
     Indication: Diffuse large B-cell lymphoma
     Dosage: ON 09/NOV/2022, HE RECEIVED MOST RECENT DOSE 2000 MG OF STUDY DRUG GEMCITABINE ADMIN PRIOR SAE
     Route: 042
     Dates: start: 20220609
  4. OXALIPLATIN [Suspect]
     Active Substance: OXALIPLATIN
     Indication: Diffuse large B-cell lymphoma
     Dosage: ON 09/NOV/2022, HE RECEIVED MOST RECENT DOSE 200 MG OF STUDY DRUG OXALIPLATIN ADMIN PRIOR SAE
     Route: 042
     Dates: start: 20220609
  5. ATORVASTATIN CALCIUM [Concomitant]
     Active Substance: ATORVASTATIN CALCIUM
     Indication: Hypertension
     Route: 048
  6. INDAPAMIDE [Concomitant]
     Active Substance: INDAPAMIDE
     Indication: Hypertension
     Route: 048
  7. PERINDOPRIL [Concomitant]
     Active Substance: PERINDOPRIL
     Indication: Hypertension
     Route: 048
  8. ALLOPURINOL [Concomitant]
     Active Substance: ALLOPURINOL
     Route: 048
  9. ENOXAPARIN SODIUM [Concomitant]
     Active Substance: ENOXAPARIN SODIUM
     Route: 048
  10. BISEPTOL [Concomitant]
     Active Substance: SULFAMETHOXAZOLE\TRIMETHOPRIM
     Route: 048
     Dates: start: 20220610
  11. ACYCLOVIR [Concomitant]
     Active Substance: ACYCLOVIR
     Route: 048
     Dates: start: 20220610
  12. ACETAMINOPHEN\TRAMADOL HYDROCHLORIDE [Concomitant]
     Active Substance: ACETAMINOPHEN\TRAMADOL HYDROCHLORIDE
     Route: 048
     Dates: start: 20220622
  13. FERROUS SULFATE [Concomitant]
     Active Substance: FERROUS SULFATE
     Route: 048
     Dates: start: 20220820
  14. FILGRASTIM [Concomitant]
     Active Substance: FILGRASTIM
     Dosage: 1 AMPULE
     Route: 058
     Dates: start: 20221222
  15. FILGRASTIM [Concomitant]
     Active Substance: FILGRASTIM
     Dosage: 1 AMPULE
     Route: 058
     Dates: start: 20230201

REACTIONS (1)
  - COVID-19 [Not Recovered/Not Resolved]

NARRATIVE: CASE EVENT DATE: 20230327
